FAERS Safety Report 7015145-X (Version None)
Quarter: 2010Q3

REPORT INFORMATION
  Report Type: 
  Country: None (occurrence: None)
  Receive Date: 20100927
  Receipt Date: 20091013
  Transmission Date: 20110219
  Serious: No
  Sender: FDA-Public Use
  Company Number: US-ASTRAZENECA-2009SE19934

PATIENT
  Age: 16 Year
  Sex: Male

DRUGS (2)
  1. ARIMIDEX [Suspect]
     Route: 048
  2. HUMAN GROWTH HORMONE [Concomitant]

REACTIONS (1)
  - BLOOD CANNABINOIDS INCREASED [None]
